FAERS Safety Report 8265757-0 (Version None)
Quarter: 2012Q2

REPORT INFORMATION
  Report Type: 
  Country: None (occurrence: None)
  Receive Date: 20120404
  Receipt Date: 20120320
  Transmission Date: 20120825
  Serious: Yes (Other)
  Sender: FDA-Public Use
  Company Number: FK201200900

PATIENT
  Age: 65 Year
  Sex: Male

DRUGS (3)
  1. FLUOROURACIL [Suspect]
     Indication: COLORECTAL CANCER METASTATIC
  2. OXALIPLATIN [Suspect]
     Indication: COLORECTAL CANCER METASTATIC
  3. LEUCOVORIN CALCIUM [Suspect]
     Indication: COLORECTAL CANCER METASTATIC

REACTIONS (2)
  - HEPATOMEGALY [None]
  - HEPATIC NEOPLASM [None]
